FAERS Safety Report 15569951 (Version 1)
Quarter: 2018Q4

REPORT INFORMATION
  Report Type: Spontaneous
  Country: US (occurrence: US)
  Receive Date: 20181025
  Receipt Date: 20181025
  Transmission Date: 20190205
  Serious: Yes (Hospitalization)
  Sender: FDA-Public Use
  Company Number: None

PATIENT
  Age: 62 Year
  Sex: Female
  Weight: 59.74 kg

DRUGS (9)
  1. HARVONI [Suspect]
     Active Substance: LEDIPASVIR\SOFOSBUVIR
     Indication: HEPATITIS C
     Route: 048
     Dates: start: 20161203, end: 20170519
  2. FLUCINONIDE [Concomitant]
  3. NIFEDIPINE. [Concomitant]
     Active Substance: NIFEDIPINE
  4. TACROLIMUS. [Concomitant]
     Active Substance: TACROLIMUS
  5. ASPIRIN. [Concomitant]
     Active Substance: ASPIRIN
  6. ENTECAVIR. [Concomitant]
     Active Substance: ENTECAVIR
  7. CELLCEPT [Concomitant]
     Active Substance: MYCOPHENOLATE MOFETIL\MYCOPHENOLATE MOFETIL HYDROCHLORIDE
  8. CALCIPOTRIENE. [Concomitant]
     Active Substance: CALCIPOTRIENE
  9. COREG [Concomitant]
     Active Substance: CARVEDILOL

REACTIONS (3)
  - Respiratory failure [None]
  - Hypoxia [None]
  - Pleural effusion [None]

NARRATIVE: CASE EVENT DATE: 20170208
